FAERS Safety Report 22528095 (Version 3)
Quarter: 2023Q2

REPORT INFORMATION
  Report Type: Spontaneous
  Country: FR (occurrence: FR)
  Receive Date: 20230607
  Receipt Date: 20230629
  Transmission Date: 20230722
  Serious: Yes (Other)
  Sender: FDA-Public Use
  Company Number: FR-CELLTRION INC.-2023FR011410

PATIENT

DRUGS (3)
  1. YUFLYMA [Suspect]
     Active Substance: ADALIMUMAB-AATY
     Indication: Crohn^s disease
     Dosage: 1 SC INJECTION OF 40 MG EVERY FORTNIGHT.
     Route: 058
     Dates: start: 202204
  2. YUFLYMA [Suspect]
     Active Substance: ADALIMUMAB-AATY
     Dosage: 1 SC INJECTION OF 80 MG EVERY WEEK
     Route: 058
     Dates: start: 20230524
  3. YUFLYMA [Suspect]
     Active Substance: ADALIMUMAB-AATY
     Dosage: 1 SC INJECTION OF 80 MG EVERY WEEK
     Route: 058
     Dates: start: 20230531

REACTIONS (7)
  - Headache [Not Recovered/Not Resolved]
  - Gait disturbance [Unknown]
  - Inflammation [Unknown]
  - Tooth infection [Unknown]
  - Drug delivery system malfunction [Unknown]
  - Device malfunction [Unknown]
  - Intentional product use issue [Unknown]

NARRATIVE: CASE EVENT DATE: 20230524
